FAERS Safety Report 15938542 (Version 1)
Quarter: 2019Q1

REPORT INFORMATION
  Report Type: Spontaneous
  Country: US (occurrence: US)
  Receive Date: 20190208
  Receipt Date: 20190208
  Transmission Date: 20190417
  Serious: No
  Sender: FDA-Public Use
  Company Number: US-ROCHE-2152579

PATIENT
  Age: 67 Year
  Sex: Female

DRUGS (1)
  1. XOLAIR [Suspect]
     Active Substance: OMALIZUMAB
     Indication: ASTHMA
     Dosage: STRENGTH 150MG
     Route: 058
     Dates: start: 20180305

REACTIONS (2)
  - Alopecia [Unknown]
  - Vision blurred [Unknown]

NARRATIVE: CASE EVENT DATE: 20180601
